FAERS Safety Report 6388836-1 (Version None)
Quarter: 2009Q3

REPORT INFORMATION
  Report Type: 
  Country: None (occurrence: None)
  Receive Date: 20090925
  Receipt Date: 20090210
  Transmission Date: 20100115
  Serious: Yes (Hospitalization)
  Sender: FDA-Public Use
  Company Number: 2009167662

PATIENT
  Age: 71 Year
  Sex: Female
  Weight: 79 kg

DRUGS (3)
  1. SUNITINIB MALATE (SUNITINIB MALATE) UNKNOWN [Suspect]
     Indication: ACUTE MYELOID LEUKAEMIA
     Dosage: 25 MG, 1X/DAY, ORAL
     Route: 048
     Dates: start: 20090105, end: 20090208
  2. DAUNORUBICIN HCL [Suspect]
     Indication: ACUTE MYELOID LEUKAEMIA
     Dosage: 114 MG, DAY 1-3, INTRAVENOUS
     Route: 042
     Dates: start: 20090105, end: 20090107
  3. CYTARABINE [Suspect]
     Indication: ACUTE MYELOID LEUKAEMIA
     Dosage: 191 MG, DAY 1-7, INTRAVENOUS
     Route: 042
     Dates: start: 20090105, end: 20090111

REACTIONS (4)
  - ANAEMIA [None]
  - LEUKOPENIA [None]
  - NASOPHARYNGITIS [None]
  - THROMBOCYTOPENIA [None]
